FAERS Safety Report 7133839 (Version 4)
Quarter: 2014Q2

REPORT INFORMATION
  Report Type: Spontaneous
  Country: US (occurrence: US)
  Receive Date: 20090929
  Receipt Date: 20140523
  Transmission Date: 20141212
  Serious: Yes (Hospitalization)
  Sender: FDA-Public Use
  Company Number: US-JNJFOC-20090906305

PATIENT
  Age: 55 Year
  Sex: Female
  Weight: 87.54 kg

DRUGS (15)
  1. REMICADE [Suspect]
     Indication: RHEUMATOID ARTHRITIS
     Route: 042
     Dates: start: 20060925
  2. REMICADE [Suspect]
     Indication: RHEUMATOID ARTHRITIS
     Route: 042
     Dates: start: 20061023
  3. REMICADE [Suspect]
     Indication: RHEUMATOID ARTHRITIS
     Route: 042
     Dates: start: 20060912
  4. REMICADE [Suspect]
     Indication: RHEUMATOID ARTHRITIS
     Route: 042
     Dates: start: 201103
  5. REMICADE [Suspect]
     Indication: RHEUMATOID ARTHRITIS
     Route: 042
     Dates: start: 200909
  6. REMICADE [Suspect]
     Indication: RHEUMATOID ARTHRITIS
     Route: 042
     Dates: start: 2008
  7. REMICADE [Suspect]
     Indication: RHEUMATOID ARTHRITIS
     Route: 042
     Dates: start: 2007
  8. ENDIUM [Concomitant]
     Indication: HYPERTENSION
     Route: 065
  9. SINGULAIR [Concomitant]
     Indication: BRONCHIAL HYPERREACTIVITY
     Route: 065
  10. ALBUTEROL [Concomitant]
     Indication: BRONCHIAL HYPERREACTIVITY
     Route: 055
  11. PYLERA [Concomitant]
     Indication: BRONCHIAL HYPERREACTIVITY
     Route: 065
  12. PERCOCET [Concomitant]
     Indication: SPINAL COLUMN STENOSIS
     Route: 065
  13. TIROFIBAN [Concomitant]
     Indication: GLAUCOMA
     Dosage: 1 DROP
     Route: 065
  14. SERTRALINE [Concomitant]
     Indication: DEPRESSION
     Route: 065
  15. KLONOPIN [Concomitant]
     Indication: ANXIETY
     Route: 065

REACTIONS (1)
  - Pulmonary tuberculosis [Recovering/Resolving]
